FAERS Safety Report 5212877-0 (Version None)
Quarter: 2007Q1

REPORT INFORMATION
  Report Type: 
  Country: None (occurrence: None)
  Receive Date: 20070119
  Receipt Date: 20070109
  Transmission Date: 20070707
  Serious: Yes (Other)
  Sender: FDA-Public Use
  Company Number: PHBS2007JP00711

PATIENT

DRUGS (15)
  1. NEORAL [Suspect]
     Indication: APLASIA PURE RED CELL
     Dosage: 250 MG/D
     Route: 048
  2. TERNELIN [Suspect]
     Route: 065
  3. PREDONINE [Concomitant]
  4. BACTRIM [Concomitant]
  5. MARZULENE S [Concomitant]
  6. KENTON N [Concomitant]
  7. OMEPRAZOLE [Concomitant]
  8. VENCOLL [Concomitant]
  9. CARTOL [Concomitant]
  10. GLAKAY [Concomitant]
  11. MONILAC [Concomitant]
  12. THYRADIN S [Concomitant]
  13. ROHYPNOL [Concomitant]
  14. AMBROXOL HYDROCHLORIDE [Concomitant]
  15. DOMPERIDONE [Concomitant]

REACTIONS (3)
  - BLOOD POTASSIUM INCREASED [None]
  - BRADYCARDIA [None]
  - SINUS ARRHYTHMIA [None]
